FAERS Safety Report 20425905 (Version 1)
Quarter: 2022Q1

REPORT INFORMATION
  Report Type: Spontaneous
  Country: JP (occurrence: JP)
  Receive Date: 20220204
  Receipt Date: 20220204
  Transmission Date: 20220423
  Serious: No
  Sender: FDA-Public Use
  Company Number: JP-TAKEDA-2021TJP019208

PATIENT
  Age: 36 Year
  Sex: Male

DRUGS (1)
  1. CABOMETYX [Suspect]
     Active Substance: CABOZANTINIB S-MALATE
     Indication: Metastatic renal cell carcinoma
     Dosage: 60 MG, QD
     Route: 048

REACTIONS (4)
  - Pyrexia [Recovered/Resolved]
  - Alopecia [Unknown]
  - Fatigue [Recovering/Resolving]
  - Diarrhoea [Unknown]
